FAERS Safety Report 16920615 (Version 2)
Quarter: 2019Q4

REPORT INFORMATION
  Report Type: Spontaneous
  Country: US (occurrence: US)
  Receive Date: 20191015
  Receipt Date: 20191105
  Transmission Date: 20200122
  Serious: No
  Sender: FDA-Public Use
  Company Number: US-PFIZER INC-2019442376

PATIENT
  Age: 41 Year
  Sex: Female
  Weight: 58.96 kg

DRUGS (1)
  1. IBRANCE [Suspect]
     Active Substance: PALBOCICLIB
     Indication: BREAST CANCER METASTATIC
     Dosage: 125 MG, CYCLIC (ONE TIME DAILY ON DAYS 1 TO 21 (DAILY FOR 21 OUT OF 28 DAYS))
     Route: 048
     Dates: start: 20190701

REACTIONS (5)
  - Inflammation [Unknown]
  - Blood count abnormal [Unknown]
  - Hypoaesthesia [Unknown]
  - Arthritis [Unknown]
  - Neuralgia [Unknown]

NARRATIVE: CASE EVENT DATE: 2019
